FAERS Safety Report 11715434 (Version 2)
Quarter: 2015Q4

REPORT INFORMATION
  Report Type: Spontaneous
  Country: US (occurrence: US)
  Receive Date: 20151104
  Receipt Date: 20151110
  Transmission Date: 20160304
  Serious: No
  Sender: FDA-Public Use
  Company Number: US-ELI_LILLY_AND_COMPANY-US201106002039

PATIENT
  Sex: Female

DRUGS (4)
  1. FORTEO [Suspect]
     Active Substance: TERIPARATIDE
     Dosage: 20 UG, QD
  2. MORPHINE [Concomitant]
     Active Substance: MORPHINE
  3. FORTEO [Suspect]
     Active Substance: TERIPARATIDE
     Dosage: 20 UG, QD
     Route: 065
  4. FORTEO [Suspect]
     Active Substance: TERIPARATIDE
     Indication: MULTIPLE FRACTURES
     Dosage: 20 UG, QD

REACTIONS (6)
  - Arthropathy [Unknown]
  - Arthralgia [Unknown]
  - Movement disorder [Unknown]
  - Pain [Unknown]
  - Off label use [Not Recovered/Not Resolved]
  - Blood calcium increased [Not Recovered/Not Resolved]
